FAERS Safety Report 9062834 (Version 1)
Quarter: 2013Q1

REPORT INFORMATION
  Report Type: Spontaneous
  Country: US (occurrence: US)
  Receive Date: 20130128
  Receipt Date: 20130128
  Transmission Date: 20140127
  Serious: Yes (Other)
  Sender: FDA-Public Use
  Company Number: US-JNJFOC-20130111326

PATIENT
  Age: 53 Year
  Sex: Female

DRUGS (6)
  1. REMICADE [Suspect]
     Indication: RHEUMATOID ARTHRITIS
     Dosage: EVERY 4-5 WEEKS
     Route: 042
     Dates: start: 2000
  2. REMICADE [Suspect]
     Indication: CROHN^S DISEASE
     Dosage: EVERY 4-5 WEEKS
     Route: 042
     Dates: start: 2000
  3. CLONIDINE [Concomitant]
     Route: 065
  4. COMBIVENT [Concomitant]
     Route: 065
  5. COUMADIN [Concomitant]
     Route: 065
  6. SEROQUEL [Concomitant]
     Route: 065

REACTIONS (2)
  - Thrombosis in device [Unknown]
  - Rheumatoid arthritis [Not Recovered/Not Resolved]
